FAERS Safety Report 6219089-2 (Version None)
Quarter: 2009Q2

REPORT INFORMATION
  Report Type: 
  Country: None (occurrence: None)
  Receive Date: 20090609
  Receipt Date: 20090529
  Transmission Date: 20091009
  Serious: Yes (Hospitalization)
  Sender: FDA-Public Use
  Company Number: FR-PFIZER INC-2009220570

PATIENT
  Age: 71 Year

DRUGS (1)
  1. SUTENT [Suspect]
     Indication: PROSTATE CANCER
     Dosage: UNK MG, 1X/DAY
     Route: 048
     Dates: start: 20080625

REACTIONS (2)
  - CYSTITIS [None]
  - HAEMATURIA [None]
